FAERS Safety Report 4500701-0 (Version None)
Quarter: 2004Q4

REPORT INFORMATION
  Report Type: 
  Country: None (occurrence: None)
  Receive Date: 20041115
  Receipt Date: 20041108
  Transmission Date: 20050328
  Serious: Yes (Other)
  Sender: FDA-Public Use
  Company Number: PHNU2004DE03793

PATIENT
  Sex: Male

DRUGS (21)
  1. CLOZARIL [Suspect]
     Indication: CATATONIA
     Dosage: 12.5 MG/DAY
     Route: 048
     Dates: start: 20040706, end: 20040707
  2. CLOZARIL [Suspect]
     Dosage: 25 MG/DAY
     Route: 048
     Dates: start: 20040708, end: 20040708
  3. CLOZARIL [Suspect]
     Dosage: 50 MG/DAY
     Route: 048
     Dates: start: 20040709, end: 20040711
  4. CLOZARIL [Suspect]
     Dosage: 100 MG/DAY
     Route: 048
     Dates: start: 20040712, end: 20040713
  5. CLOZARIL [Suspect]
     Dosage: 150 MG/DAY
     Route: 048
     Dates: start: 20040714, end: 20040714
  6. CLOZARIL [Suspect]
     Dosage: 200 MG/DAY
     Route: 048
     Dates: start: 20040715, end: 20040715
  7. CLOZARIL [Suspect]
     Dosage: 400 MG/DAY
     Route: 048
     Dates: start: 20040716, end: 20040720
  8. CLOZARIL [Suspect]
     Dosage: 300 MG/DAY
     Route: 048
     Dates: start: 20040721, end: 20040721
  9. CLOZARIL [Suspect]
     Dosage: 250 MG/DAY
     Route: 048
     Dates: start: 20040722, end: 20040722
  10. CLOZARIL [Suspect]
     Dosage: 200 MG/DAY
     Route: 048
     Dates: start: 20040723, end: 20040723
  11. CLOZARIL [Suspect]
     Dosage: 150 MG/DAY
     Route: 048
     Dates: start: 20040724, end: 20040724
  12. CLOZARIL [Suspect]
     Dosage: 100 MG/DAY
     Route: 048
     Dates: start: 20040726, end: 20040729
  13. NEUROCIL [Suspect]
     Dosage: 350 MG/DAY
     Route: 048
     Dates: start: 20040601, end: 20040705
  14. NEUROCIL [Suspect]
     Dosage: 250 MG/DAY
     Route: 048
     Dates: start: 20040706, end: 20040706
  15. NEUROCIL [Suspect]
     Dosage: 200 MG/DAY
     Route: 048
     Dates: start: 20040707, end: 20040707
  16. NEUROCIL [Suspect]
     Dosage: 125 MG/DAY
     Dates: start: 20040708, end: 20040708
  17. NEUROCIL [Suspect]
     Dosage: 75 MG/DAY
     Route: 048
     Dates: start: 20040709, end: 20040709
  18. NEUROCIL [Suspect]
     Dosage: 50 MG/DAY
     Route: 048
     Dates: start: 20040710, end: 20040710
  19. GASTROZEPIN [Concomitant]
     Dosage: 25 MG/DAY
     Route: 048
     Dates: start: 20040619, end: 20040620
  20. GASTROZEPIN [Concomitant]
     Dosage: 50 MG/DAY
     Route: 048
     Dates: start: 20040621, end: 20040720
  21. GASTROZEPIN [Concomitant]
     Dosage: 75 MG/DAY
     Route: 048
     Dates: start: 20040721

REACTIONS (2)
  - DRUG INEFFECTIVE [None]
  - PLEUROTHOTONUS [None]
